FAERS Safety Report 9746144 (Version 1)
Quarter: 2013Q4

REPORT INFORMATION
  Report Type: Spontaneous
  Country: US (occurrence: US)
  Receive Date: 20131211
  Receipt Date: 20131211
  Transmission Date: 20140711
  Serious: Yes (Hospitalization)
  Sender: FDA-Public Use
  Company Number: US-GILEAD-2009-0025663

PATIENT
  Age: 55 Year
  Sex: Female

DRUGS (2)
  1. ATRIPLA [Suspect]
     Indication: HIV INFECTION
  2. TMP/SMX [Concomitant]
     Indication: ANTIFUNGAL PROPHYLAXIS

REACTIONS (7)
  - Renal failure acute [Unknown]
  - Diarrhoea [Unknown]
  - Nausea [Unknown]
  - Anaemia [Unknown]
  - Neutropenia [Unknown]
  - Red blood cell sedimentation rate increased [Unknown]
  - Arthralgia [Unknown]
